FAERS Safety Report 7378678-2 (Version None)
Quarter: 2011Q1

REPORT INFORMATION
  Report Type: 
  Country: None (occurrence: None)
  Receive Date: 20110328
  Receipt Date: 20110323
  Transmission Date: 20110831
  Serious: Yes (Hospitalization, Other)
  Sender: FDA-Public Use
  Company Number: US-CEPHALON-2011001386

PATIENT
  Sex: Female

DRUGS (1)
  1. TREANDA [Suspect]
     Indication: CHRONIC LYMPHOCYTIC LEUKAEMIA
     Route: 042
     Dates: start: 20110110, end: 20110208

REACTIONS (9)
  - CHILLS [None]
  - PYREXIA [None]
  - FEELING ABNORMAL [None]
  - SKIN EXFOLIATION [None]
  - RASH PRURITIC [None]
  - BLOOD PRESSURE DECREASED [None]
  - CYANOSIS [None]
  - OXYGEN SATURATION DECREASED [None]
  - RASH ERYTHEMATOUS [None]
